FAERS Safety Report 12711273 (Version 1)
Quarter: 2016Q3

REPORT INFORMATION
  Report Type: Spontaneous
  Country: US (occurrence: US)
  Receive Date: 20160902
  Receipt Date: 20160902
  Transmission Date: 20161109
  Serious: Yes (Hospitalization)
  Sender: FDA-Public Use
  Company Number: US-AMGEN-USASP2016115367

PATIENT
  Sex: Male

DRUGS (3)
  1. IMLYGIC [Suspect]
     Active Substance: TALIMOGENE LAHERPAREPVEC
     Indication: METASTATIC MALIGNANT MELANOMA
     Dosage: UNK UNK, UNK (LOW DOSE)
     Route: 065
     Dates: start: 20160816
  2. PREDNISONE. [Concomitant]
     Active Substance: PREDNISONE
     Indication: HYPOTHALAMO-PITUITARY DISORDER
     Dosage: 10 MG, BID (TWICE DAILY)
  3. VASOPRESSIN. [Concomitant]
     Active Substance: VASOPRESSIN
     Indication: HYPOTHALAMO-PITUITARY DISORDER
     Dosage: UNK

REACTIONS (2)
  - Pyrexia [Recovered/Resolved]
  - Mental status changes [Recovering/Resolving]

NARRATIVE: CASE EVENT DATE: 201608
